FAERS Safety Report 7859008-6 (Version None)
Quarter: 2011Q4

REPORT INFORMATION
  Report Type: 
  Country: None (occurrence: None)
  Receive Date: 20111027
  Receipt Date: 20111013
  Transmission Date: 20120403
  Serious: Yes (Other)
  Sender: FDA-Public Use
  Company Number: JP-RANBAXY-2011RR-47424

PATIENT
  Sex: Female

DRUGS (15)
  1. CALCIUM L-ASPARTATE HYDRATE [Concomitant]
     Indication: PRODUCT USED FOR UNKNOWN INDICATION
     Dosage: UNK
     Route: 065
     Dates: start: 20070903, end: 20110715
  2. TOCOPHEROL CONCENTRATE CAP [Concomitant]
     Indication: PRODUCT USED FOR UNKNOWN INDICATION
     Dosage: UNK
     Route: 065
     Dates: start: 20070903, end: 20110715
  3. AMLODIPINE [Suspect]
     Indication: HYPERTENSION
     Dosage: 5 MG, UNK
     Route: 048
     Dates: start: 19950113
  4. ALFACALCIDOL [Concomitant]
     Indication: PRODUCT USED FOR UNKNOWN INDICATION
     Route: 065
  5. CALCIUM PANTOTHENATE [Concomitant]
     Indication: PRODUCT USED FOR UNKNOWN INDICATION
     Dosage: UNK
     Route: 065
     Dates: start: 20070901, end: 20110715
  6. AMLODIPINE [Suspect]
     Dosage: UNK
     Route: 048
     Dates: start: 20110711, end: 20110715
  7. ASPIRIN [Concomitant]
     Indication: PRODUCT USED FOR UNKNOWN INDICATION
     Dosage: UNK
     Route: 065
     Dates: start: 20031201, end: 20110715
  8. FENOFIBRATE [Suspect]
     Dosage: UNK
     Route: 048
     Dates: start: 20110712, end: 20110715
  9. UBIDECARENONE [Concomitant]
     Indication: PRODUCT USED FOR UNKNOWN INDICATION
     Dosage: UNK
     Route: 065
     Dates: start: 20070903, end: 20110715
  10. RABEPRAZOLE SODIUM [Concomitant]
     Indication: PRODUCT USED FOR UNKNOWN INDICATION
     Dosage: UNK
     Route: 065
     Dates: start: 20070903, end: 20100715
  11. EICOSAPENTAENOIC ACID ETHYL ESTER [Concomitant]
     Indication: PRODUCT USED FOR UNKNOWN INDICATION
     Dosage: UNK
     Route: 065
     Dates: start: 20070903, end: 20110715
  12. CAMOSTAT MESILATE [Concomitant]
     Indication: PRODUCT USED FOR UNKNOWN INDICATION
     Dosage: UNK
     Route: 065
     Dates: start: 20070903, end: 20110715
  13. FENOFIBRATE [Suspect]
     Indication: HYPERLIPIDAEMIA
     Dosage: 100 MG, UNK
     Route: 048
     Dates: start: 20050324, end: 20110711
  14. AMLODIPINE [Suspect]
     Dosage: UNK
     Route: 048
     Dates: start: 20110713, end: 20110715
  15. BEPOTASTINE BESILATE [Concomitant]
     Indication: PRODUCT USED FOR UNKNOWN INDICATION
     Dosage: UNK
     Route: 065
     Dates: start: 20070903, end: 20110715

REACTIONS (3)
  - DRUG ERUPTION [None]
  - PYREXIA [None]
  - STEVENS-JOHNSON SYNDROME [None]
